FAERS Safety Report 15681384 (Version 4)
Quarter: 2018Q4

REPORT INFORMATION
  Report Type: Spontaneous
  Country: BR (occurrence: BR)
  Receive Date: 20181203
  Receipt Date: 20181226
  Transmission Date: 20190205
  Serious: Yes (Death)
  Sender: FDA-Public Use
  Company Number: BR-PFIZER INC-2018430168

PATIENT
  Age: 55 Year
  Sex: Female

DRUGS (5)
  1. DIPYRONE [Concomitant]
     Active Substance: DIPYRONE
     Dosage: UNK
  2. MORPHINE [Concomitant]
     Active Substance: MORPHINE
     Dosage: UNK
  3. SUTENT [Suspect]
     Active Substance: SUNITINIB MALATE
     Indication: HEPATIC CANCER
     Dosage: 37.5 MG, DAILY
     Dates: start: 20181010, end: 20181023
  4. PLASIL [METOCLOPRAMIDE] [Concomitant]
     Dosage: UNK
  5. SUTENT [Suspect]
     Active Substance: SUNITINIB MALATE
     Dosage: 37.5 MG, DAILY
     Dates: start: 20181010, end: 20181023

REACTIONS (8)
  - Cardiac arrest [Fatal]
  - Somnolence [Recovered/Resolved]
  - Peripheral swelling [Recovered/Resolved]
  - Wound [Recovered/Resolved]
  - Dysstasia [Recovered/Resolved]
  - Neoplasm progression [Fatal]
  - Asthenia [Recovered/Resolved]
  - Product use in unapproved indication [Unknown]

NARRATIVE: CASE EVENT DATE: 201810
